FAERS Safety Report 7983767 (Version 2)
Quarter: 2012Q4

REPORT INFORMATION
  Report Type: 
  Country: CA (occurrence: CA)
  Receive Date: 20110609
  Receipt Date: 20121109
  Transmission Date: 20130627
  Serious: Yes (Death, Hospitalization)
  Sender: FDA-Public Use
  Company Number: PHHY2009CA27962

PATIENT
  Sex: Female

DRUGS (6)
  1. SANDOSTATIN LAR [Suspect]
     Indication: CARCINOID TUMOUR
     Dosage: 60 mg, every 4 weeks
     Route: 030
     Dates: start: 20030821
  2. SANDOSTATIN LAR [Suspect]
     Dosage: 40 mg, QW2
     Dates: start: 20030821
  3. COUMADINE [Concomitant]
  4. PMS-DEXAMETHASONE [Concomitant]
  5. PROCHLORPERAZINE [Concomitant]
  6. ZOFRAN [Concomitant]

REACTIONS (9)
  - Death [Fatal]
  - Abdominal pain [Recovering/Resolving]
  - Flushing [Unknown]
  - Palpitations [Unknown]
  - Wheezing [Unknown]
  - Injection site haemorrhage [Unknown]
  - Dyspnoea [Unknown]
  - Diarrhoea [Unknown]
  - Injection site pain [Unknown]
